FAERS Safety Report 8480222-3 (Version None)
Quarter: 2012Q2

REPORT INFORMATION
  Report Type: 
  Country: None (occurrence: None)
  Receive Date: 20120629
  Receipt Date: 20120622
  Transmission Date: 20120825
  Serious: Yes (Hospitalization)
  Sender: FDA-Public Use
  Company Number: FR-RB-041763-12

PATIENT
  Age: 34 Year
  Sex: Male

DRUGS (1)
  1. SUBUTEX [Suspect]
     Indication: PRODUCT USED FOR UNKNOWN INDICATION
     Dosage: OTHER DRUG DETAILS UNKNOWN
     Route: 042
     Dates: start: 20020101, end: 20120612

REACTIONS (2)
  - ENDOCARDITIS [None]
  - INTENTIONAL DRUG MISUSE [None]
